FAERS Safety Report 9369299 (Version 2)
Quarter: 2013Q3

REPORT INFORMATION
  Report Type: Spontaneous
  Country: DK (occurrence: DK)
  Receive Date: 20130626
  Receipt Date: 20130827
  Transmission Date: 20140515
  Serious: Yes (Other)
  Sender: FDA-Public Use
  Company Number: 2013SP004967

PATIENT
  Age: 41 Year
  Sex: Female

DRUGS (8)
  1. FLUCONAZOLE [Suspect]
     Indication: ANTIFUNGAL PROPHYLAXIS
  2. IFOSFAMIDE [Suspect]
     Indication: EWING^S SARCOMA
  3. PREDNISOLONE [Suspect]
     Indication: EWING^S SARCOMA
  4. DOXORUBICIN [Suspect]
     Indication: EWING^S SARCOMA
  5. VINCRISTINE SULFATE [Suspect]
     Indication: EWING^S SARCOMA
  6. MIRTAZAPINE [Suspect]
  7. ETOPOSIDE [Suspect]
     Indication: EWING^S SARCOMA
  8. ETOPOSIDE [Suspect]
     Indication: EWING^S SARCOMA

REACTIONS (4)
  - Drug interaction [Unknown]
  - Drug level increased [Unknown]
  - Paraesthesia [Recovering/Resolving]
  - Motor dysfunction [Recovering/Resolving]
